FAERS Safety Report 4945241-X (Version None)
Quarter: 2006Q1

REPORT INFORMATION
  Report Type: 
  Country: None (occurrence: None)
  Receive Date: 20060315
  Receipt Date: 20060315
  Transmission Date: 20060701
  Serious: Yes (Other)
  Sender: FDA-Public Use
  Company Number: None

PATIENT
  Age: 80 Year
  Sex: Male
  Weight: 69.4003 kg

DRUGS (14)
  1. ARANESP [Suspect]
     Indication: ANAEMIA
     Dosage: 60MCG, 80MCG
     Route: 058
     Dates: start: 20060213
  2. ARANESP [Suspect]
     Indication: ANAEMIA
     Dosage: 60MCG, 80MCG
     Route: 058
     Dates: start: 20060217
  3. ARANESP [Suspect]
     Indication: ANAEMIA
     Dosage: 60MCG, 80MCG
     Route: 058
     Dates: start: 20060220
  4. COUMADIN [Concomitant]
  5. NORVASC [Concomitant]
  6. IMDUR [Concomitant]
  7. ASPIRIN [Concomitant]
  8. LOPRESSOR [Concomitant]
  9. COLACE [Concomitant]
  10. ZOCOR [Concomitant]
  11. FLOMAX [Concomitant]
  12. POTASSIUM CHLORIDE [Concomitant]
  13. ATACAND/HCTZ [Concomitant]
  14. PRIMAXIN [Concomitant]

REACTIONS (2)
  - BRADYCARDIA [None]
  - VENTRICULAR EXTRASYSTOLES [None]
